FAERS Safety Report 20213891 (Version 1)
Quarter: 2021Q4

REPORT INFORMATION
  Report Type: Report from Study
  Country: MX (occurrence: MX)
  Receive Date: 20211221
  Receipt Date: 20211221
  Transmission Date: 20220303
  Serious: Yes (Other)
  Sender: FDA-Public Use
  Company Number: MX-NOVARTISPH-PHHY2008MX13985

PATIENT

DRUGS (1)
  1. TRILEPTAL [Suspect]
     Active Substance: OXCARBAZEPINE
     Indication: Epilepsy
     Dosage: UNK
     Route: 064
     Dates: start: 2006

REACTIONS (5)
  - Deafness [Unknown]
  - Dyspnoea [Unknown]
  - Psychomotor retardation [Unknown]
  - Developmental delay [Unknown]
  - Foetal exposure during pregnancy [Unknown]
